FAERS Safety Report 12932142 (Version 3)
Quarter: 2016Q4

REPORT INFORMATION
  Report Type: Spontaneous
  Country: GB (occurrence: GB)
  Receive Date: 20161111
  Receipt Date: 20161121
  Transmission Date: 20170207
  Serious: Yes (Hospitalization, Other)
  Sender: FDA-Public Use
  Company Number: GB-AUROBINDO-AUR-APL-2016-13680

PATIENT
  Age: 85 Year
  Sex: Female

DRUGS (6)
  1. TEMOCILLIN [Suspect]
     Active Substance: TEMOCILLIN
     Indication: PNEUMONIA
     Dosage: UNK
     Dates: start: 201510, end: 201511
  2. TAZOCIN [Suspect]
     Active Substance: PIPERACILLIN SODIUM\TAZOBACTAM SODIUM
     Route: 065
     Dates: start: 201509, end: 20151001
  3. MEROPENEM. [Suspect]
     Active Substance: MEROPENEM
     Indication: PNEUMONIA
     Dosage: UNK
     Route: 065
     Dates: start: 201511, end: 201511
  4. AMOXICILLIN. [Suspect]
     Active Substance: AMOXICILLIN
     Indication: PNEUMONIA
     Dosage: UNK
     Route: 065
     Dates: start: 201510, end: 201510
  5. CEFTAZIDIME. [Suspect]
     Active Substance: CEFTAZIDIME
     Indication: OSTEOMYELITIS
     Dosage: 2 G, 3 TIMES A DAY
     Route: 042
     Dates: start: 20150930, end: 201511
  6. AUGMENTIN [Suspect]
     Active Substance: AMOXICILLIN\CLAVULANATE POTASSIUM
     Indication: OSTEOMYELITIS
     Route: 065
     Dates: start: 20150916, end: 20150923

REACTIONS (12)
  - Confusional state [Recovered/Resolved]
  - C-reactive protein increased [Recovered/Resolved]
  - Toxicity to various agents [Recovered/Resolved]
  - White blood cell count increased [Recovered/Resolved]
  - Acute kidney injury [Recovered/Resolved]
  - Pyrexia [Recovered/Resolved]
  - Myoclonus [Recovered/Resolved]
  - Status epilepticus [Recovered/Resolved]
  - Corneal reflex decreased [Recovered/Resolved]
  - Neurotoxicity [Recovered/Resolved]
  - Coma scale abnormal [Recovered/Resolved]
  - Blood creatinine increased [Recovered/Resolved]
